FAERS Safety Report 10463693 (Version 2)
Quarter: 2014Q3

REPORT INFORMATION
  Report Type: Spontaneous
  Country: FR (occurrence: FR)
  Receive Date: 20140919
  Receipt Date: 20140919
  Transmission Date: 20150326
  Serious: Yes (Hospitalization)
  Sender: FDA-Public Use
  Company Number: FR-JNJFOC-JACFRA2000000429

PATIENT
  Age: 31 Year
  Sex: Male
  Weight: 77.8 kg

DRUGS (8)
  1. DEPAKINE CHRONO [Interacting]
     Active Substance: VALPROATE SODIUM
     Indication: LENNOX-GASTAUT SYNDROME
     Route: 048
     Dates: start: 199908
  2. GARDENAL [Concomitant]
     Active Substance: PHENOBARBITAL
     Indication: LENNOX-GASTAUT SYNDROME
     Route: 048
     Dates: start: 1995, end: 199812
  3. RIVOTRIL [Concomitant]
     Active Substance: CLONAZEPAM
     Indication: EPILEPSY
     Route: 048
     Dates: end: 199905
  4. EPITOMAX [Suspect]
     Active Substance: TOPIRAMATE
     Indication: LENNOX-GASTAUT SYNDROME
     Route: 048
     Dates: start: 19990412
  5. LEXOMIL [Concomitant]
     Active Substance: BROMAZEPAM
     Indication: LENNOX-GASTAUT SYNDROME
     Route: 048
     Dates: start: 199509, end: 199908
  6. DEPAKINE CHRONO [Interacting]
     Active Substance: VALPROATE SODIUM
     Indication: LENNOX-GASTAUT SYNDROME
     Route: 048
     Dates: start: 199509, end: 199908
  7. LEXOMIL [Concomitant]
     Active Substance: BROMAZEPAM
     Indication: LENNOX-GASTAUT SYNDROME
     Route: 048
     Dates: start: 199908
  8. EPITOMAX [Suspect]
     Active Substance: TOPIRAMATE
     Indication: LENNOX-GASTAUT SYNDROME
     Route: 048
     Dates: start: 19981005, end: 20000411

REACTIONS (9)
  - Electroencephalogram abnormal [Recovered/Resolved]
  - Leukopenia [Recovered/Resolved]
  - Tremor [Recovered/Resolved]
  - Thrombocytopenia [Recovered/Resolved]
  - Encephalopathy [Recovered/Resolved]
  - Fatigue [Recovered/Resolved]
  - Weight decreased [Recovered/Resolved]
  - Drug interaction [Recovered/Resolved]
  - Hyperammonaemia [Recovered/Resolved]

NARRATIVE: CASE EVENT DATE: 199904
